FAERS Safety Report 22146939 (Version 1)
Quarter: 2023Q1

REPORT INFORMATION
  Report Type: Spontaneous
  Country: US (occurrence: None)
  Receive Date: 20230327
  Receipt Date: 20230327
  Transmission Date: 20230418
  Serious: Yes (Other)
  Sender: FDA-Public Use
  Company Number: None

PATIENT
  Age: 75 Year
  Sex: Female
  Weight: 96.7 kg

DRUGS (3)
  1. ALTEPLASE [Suspect]
     Active Substance: ALTEPLASE
     Indication: Ischaemic stroke
     Route: 041
     Dates: start: 20230326, end: 20230326
  2. LABETALOL [Concomitant]
     Active Substance: LABETALOL\LABETALOL HYDROCHLORIDE
     Dates: start: 20230326, end: 20230326
  3. OMNIPAQUE [Concomitant]
     Active Substance: IOHEXOL
     Dates: start: 20230326, end: 20230326

REACTIONS (4)
  - Hypotension [None]
  - Infusion related reaction [None]
  - Vomiting [None]
  - Unresponsive to stimuli [None]

NARRATIVE: CASE EVENT DATE: 20230326
